FAERS Safety Report 9135964 (Version 1)
Quarter: 2013Q1

REPORT INFORMATION
  Report Type: Spontaneous
  Country: US (occurrence: None)
  Receive Date: 20130227
  Receipt Date: 20130227
  Transmission Date: 20140127
  Serious: Yes (Death)
  Sender: FDA-Public Use
  Company Number: AUR-APL-2013-00467

PATIENT
  Age: 54 Year
  Sex: Female

DRUGS (12)
  1. LISINOPRIL (LISINOPRIL) [Suspect]
     Indication: PRODUCT USED FOR UNKNOWN INDICATION
  2. GABAPENTIN (GABAPENTIN) [Suspect]
     Indication: PRODUCT USED FOR UNKNOWN INDICATION
  3. CETIRIZINE (CETIRIZINE) [Suspect]
     Indication: PRODUCT USED FOR UNKNOWN INDICATION
  4. TRAZODONE (TRAZODONE) [Suspect]
     Indication: PRODUCT USED FOR UNKNOWN INDICATION
  5. LIPOZENE [Suspect]
     Indication: PRODUCT USED FOR UNKNOWN INDICATION
  6. MONTELUKAST [Suspect]
     Indication: PRODUCT USED FOR UNKNOWN INDICATION
  7. DOCUSATE (DOCUSATE) [Suspect]
     Indication: PRODUCT USED FOR UNKNOWN INDICATION
  8. ACETAMINOPHEN/DIPHENHYDRAMINE [Suspect]
     Indication: PRODUCT USED FOR UNKNOWN INDICATION
  9. PREDNISONE (PREDNISONE) [Suspect]
     Indication: PRODUCT USED FOR UNKNOWN INDICATION
  10. HYDROXYZINE (HYDROXYZINE) [Suspect]
     Indication: PRODUCT USED FOR UNKNOWN INDICATION
  11. MAGNESIUM SALICYLATE/PAMABROM [Suspect]
     Indication: PRODUCT USED FOR UNKNOWN INDICATION
  12. AMITRIPTYLINE (AMITRIPTYLINE) [Suspect]
     Indication: PRODUCT USED FOR UNKNOWN INDICATION
     Route: 048

REACTIONS (1)
  - Toxicity to various agents [None]
